FAERS Safety Report 7094026-X (Version None)
Quarter: 2010Q4

REPORT INFORMATION
  Report Type: 
  Country: None (occurrence: None)
  Receive Date: 20101102
  Receipt Date: 20101026
  Transmission Date: 20110411
  Serious: Yes (Hospitalization)
  Sender: FDA-Public Use
  Company Number: 2010MA003950

PATIENT
  Age: 54 Year
  Sex: Male

DRUGS (3)
  1. GABAPENTIN [Suspect]
     Indication: NEURALGIA
     Dosage: 600 MG; HS; PO
     Route: 048
     Dates: start: 20030101, end: 20080101
  2. TRAZODONE [Concomitant]
  3. VICODIN [Concomitant]

REACTIONS (11)
  - ASTERIXIS [None]
  - CONFUSIONAL STATE [None]
  - DROP ATTACKS [None]
  - DYSARTHRIA [None]
  - ENCEPHALOPATHY [None]
  - FALL [None]
  - HALLUCINATIONS, MIXED [None]
  - MEMORY IMPAIRMENT [None]
  - MYOCLONUS [None]
  - SOMNOLENCE [None]
  - TREMOR [None]
